FAERS Safety Report 12448104 (Version 6)
Quarter: 2016Q3

REPORT INFORMATION
  Report Type: Report from Study
  Country: CN (occurrence: CN)
  Receive Date: 20160608
  Receipt Date: 20160928
  Transmission Date: 20161109
  Serious: Yes (Death, Hospitalization)
  Sender: FDA-Public Use
  Company Number: CN-ASTELLAS-2016JP008743

PATIENT
  Age: 82 Year
  Sex: Male
  Weight: 57 kg

DRUGS (19)
  1. VITAMIN C [Concomitant]
     Active Substance: ASCORBIC ACID
     Indication: MINERAL SUPPLEMENTATION
     Route: 048
     Dates: start: 201409
  2. RAY BELLA SODIUM [Concomitant]
     Indication: GASTRITIS
     Dosage: UNKNOWN DOSE
     Route: 048
     Dates: start: 201606, end: 201606
  3. RECOMBINANT HUMAN?LNTERLEUKIN-11 [Concomitant]
     Indication: PLATELET COUNT DECREASED
     Dosage: UNKNOWN DOSE
     Route: 030
     Dates: start: 20160527, end: 201606
  4. LEUPROLIDE                         /00726901/ [Concomitant]
     Indication: PROSTATE CANCER
     Route: 030
     Dates: start: 20140529
  5. AMINO ACID [Concomitant]
     Active Substance: AMINO ACIDS
     Indication: ANAEMIA
     Dosage: UNKNOWN DOSE
     Route: 042
     Dates: start: 20160527, end: 201606
  6. PLACEBO [Suspect]
     Active Substance: UNSPECIFIED INGREDIENT
     Indication: HORMONE-REFRACTORY PROSTATE CANCER
     Route: 048
     Dates: start: 20141106, end: 20160522
  7. RED BLOOD CELLS [Concomitant]
     Active Substance: HUMAN RED BLOOD CELL
     Indication: ANAEMIA
     Dosage: UNKNOWN DOSE
     Route: 042
     Dates: start: 20160527, end: 201606
  8. CARBAZOCHROME SODIUM SULFONATE [Concomitant]
     Active Substance: CARBAZOCHROME SODIUM SULFONATE
     Indication: HAEMORRHAGE PROPHYLAXIS
     Dosage: UNKNOWN DOSE
     Route: 042
     Dates: start: 20160527, end: 201606
  9. IRON POLYSACCHARIDE COMPLEX [Concomitant]
     Indication: ANAEMIA
     Dosage: UNKNOWN DOSE
     Route: 048
     Dates: start: 201605, end: 201606
  10. YIXUESHENG JIAO NANG [Concomitant]
     Route: 048
     Dates: start: 20150414
  11. VITAMIN B2                         /00154901/ [Concomitant]
     Indication: PROPHYLAXIS
     Route: 048
     Dates: start: 201409
  12. SHU JIN JIE LI JIAONANG [Concomitant]
     Indication: MUSCULAR WEAKNESS
     Route: 048
     Dates: start: 20160129
  13. MEGESTROL ACETATE. [Concomitant]
     Active Substance: MEGESTROL ACETATE
     Indication: PROSTATE CANCER
     Dosage: UNKNOWN DOSE
     Route: 048
     Dates: start: 201606, end: 201606
  14. YIXUESHENG JIAO NANG [Concomitant]
     Indication: ANAEMIA
     Dosage: 0.25 G, ONCE DAILY
     Route: 048
     Dates: start: 20150216
  15. LIAN HUA QING [Concomitant]
     Indication: PYREXIA
     Route: 048
     Dates: start: 20160526, end: 20160526
  16. MINO SODIUM [Concomitant]
     Indication: EMPHYSEMA
     Dosage: UNKNOWN DOSE
     Route: 042
     Dates: start: 20160527, end: 201606
  17. ENZALUTAMIDE [Suspect]
     Active Substance: ENZALUTAMIDE
     Indication: HORMONE-REFRACTORY PROSTATE CANCER
     Route: 048
     Dates: start: 20160523, end: 20160527
  18. PAMIDRONATE DISODIUM. [Concomitant]
     Active Substance: PAMIDRONATE DISODIUM
     Indication: METASTASES TO BONE
     Route: 042
     Dates: start: 20140904
  19. VITAMIN AD [Concomitant]
     Active Substance: PETROLATUM
     Indication: MINERAL SUPPLEMENTATION
     Route: 048
     Dates: start: 2007

REACTIONS (3)
  - Vomiting [Recovered/Resolved]
  - Nausea [Recovered/Resolved]
  - Lung infection [Fatal]

NARRATIVE: CASE EVENT DATE: 20160526
